FAERS Safety Report 17386707 (Version 1)
Quarter: 2020Q1

REPORT INFORMATION
  Report Type: Spontaneous
  Country: CZ (occurrence: CZ)
  Receive Date: 20200206
  Receipt Date: 20200206
  Transmission Date: 20200409
  Serious: Yes (Other)
  Sender: FDA-Public Use
  Company Number: CZ-MYLANLABS-2020M1013271

PATIENT
  Sex: Female

DRUGS (4)
  1. IMATINIB. [Suspect]
     Active Substance: IMATINIB MESYLATE
     Indication: GASTROINTESTINAL STROMAL TUMOUR
     Dosage: 400 MILLIGRAM, QD
     Route: 065
  2. IMATINIB. [Suspect]
     Active Substance: IMATINIB MESYLATE
     Dosage: 600 MILLIGRAM, QD
     Route: 065
  3. IMATINIB. [Suspect]
     Active Substance: IMATINIB MESYLATE
     Dosage: 800 MILLIGRAM, QD
     Route: 065
  4. SUNITINIB [Suspect]
     Active Substance: SUNITINIB
     Indication: GASTROINTESTINAL STROMAL TUMOUR
     Dosage: 50 MILLIGRAM, QD
     Route: 065

REACTIONS (3)
  - Malignant neoplasm progression [Unknown]
  - Gene mutation [Unknown]
  - Gastrointestinal stromal tumour [Unknown]
